FAERS Safety Report 9558840 (Version 2)
Quarter: 2013Q3

REPORT INFORMATION
  Report Type: Report from Study
  Country: MX (occurrence: MX)
  Receive Date: 20130926
  Receipt Date: 20130926
  Transmission Date: 20140515
  Serious: Yes (Other)
  Sender: FDA-Public Use
  Company Number: PHHY2011MX70562

PATIENT
  Age: 72 Year
  Sex: Female

DRUGS (3)
  1. ACLASTA [Suspect]
     Indication: OSTEOPOROSIS
     Dosage: 5 MG/100ML PER YEAR
     Route: 042
     Dates: start: 20100802
  2. ACLASTA [Suspect]
     Dosage: UNK UKN, UNK
     Route: 042
     Dates: start: 201109
  3. MACRODANTINA [Concomitant]
     Dosage: 1 DF, QD
     Route: 048
     Dates: start: 20080505

REACTIONS (3)
  - Hip fracture [Recovered/Resolved]
  - Fall [Recovered/Resolved]
  - Abdominal pain upper [Not Recovered/Not Resolved]
